FAERS Safety Report 7163840-4 (Version None)
Quarter: 2010Q4

REPORT INFORMATION
  Report Type: 
  Country: None (occurrence: None)
  Receive Date: 20101215
  Receipt Date: 20100622
  Transmission Date: 20110411
  Serious: Yes (Other)
  Sender: FDA-Public Use
  Company Number: US-PFIZER INC-2010078375

PATIENT
  Sex: Female
  Weight: 50.8 kg

DRUGS (9)
  1. LYRICA [Suspect]
     Indication: FIBROMYALGIA
     Dosage: 75 MG, 1X/DAY
     Dates: start: 20100528, end: 20100101
  2. LYRICA [Suspect]
     Dosage: 75 MG, 2X/DAY
     Dates: start: 20100101, end: 20100101
  3. NEURONTIN [Concomitant]
     Indication: FIBROMYALGIA
     Dosage: UNK
     Dates: end: 20100101
  4. TOPAMAX [Concomitant]
     Dosage: UNK
  5. DURAGESIC-100 [Concomitant]
     Dosage: UNK
  6. XANAX [Concomitant]
     Dosage: UNK
  7. RESTORIL [Concomitant]
     Dosage: UNK
  8. NORCO [Concomitant]
     Dosage: UNK
  9. CYMBALTA [Concomitant]
     Dosage: UNK

REACTIONS (4)
  - ALOPECIA [None]
  - CHOKING [None]
  - DYSPHAGIA [None]
  - NEGATIVE THOUGHTS [None]
